FAERS Safety Report 7216083-X (Version None)
Quarter: 2011Q1

REPORT INFORMATION
  Report Type: 
  Country: None (occurrence: None)
  Receive Date: 20110105
  Receipt Date: 20110105
  Transmission Date: 20110831
  Serious: Yes (Hospitalization)
  Sender: FDA-Public Use
  Company Number: None

PATIENT
  Age: 61 Year
  Sex: Female
  Weight: 97.977 kg

DRUGS (1)
  1. DECADRON [Suspect]
     Indication: SINUSITIS
     Dosage: ONCE A YEAR
     Dates: start: 20101210, end: 20101210

REACTIONS (4)
  - BLOOD PRESSURE INCREASED [None]
  - DRUG ADMINISTRATION ERROR [None]
  - THYROID FUNCTION TEST ABNORMAL [None]
  - BLOOD GLUCOSE ABNORMAL [None]
